FAERS Safety Report 12647283 (Version 1)
Quarter: 2016Q3

REPORT INFORMATION
  Report Type: Spontaneous
  Country: CO (occurrence: CO)
  Receive Date: 20160812
  Receipt Date: 20160812
  Transmission Date: 20161109
  Serious: Yes (Death)
  Sender: FDA-Public Use
  Company Number: CO-SUN PHARMACEUTICAL INDUSTRIES LTD-2016R1-121831

PATIENT
  Age: 24 Month
  Sex: Male

DRUGS (3)
  1. DOXORUBICIN [Suspect]
     Active Substance: DOXORUBICIN
     Indication: HEPATOBLASTOMA
     Dosage: 4 CYCLES
     Route: 065
  2. DOXORUBICIN [Suspect]
     Active Substance: DOXORUBICIN
     Indication: THERAPEUTIC EMBOLISATION
  3. CISPLATIN. [Suspect]
     Active Substance: CISPLATIN
     Indication: HEPATOBLASTOMA
     Dosage: UNK
     Route: 065

REACTIONS (1)
  - Hepatic failure [Fatal]
